FAERS Safety Report 9649000 (Version 1)
Quarter: 2013Q4

REPORT INFORMATION
  Report Type: Spontaneous
  Country: FR (occurrence: FR)
  Receive Date: 20131028
  Receipt Date: 20131028
  Transmission Date: 20140711
  Serious: Yes (Death, Other)
  Sender: FDA-Public Use
  Company Number: FR-CELGENEUS-056-50794-13103034

PATIENT
  Age: 73 Year
  Sex: Male

DRUGS (2)
  1. VIDAZA [Suspect]
     Indication: MYELODYSPLASTIC SYNDROME
     Route: 065
     Dates: end: 201109
  2. ETOPOSIDE [Concomitant]
     Indication: CHLOROMA
     Route: 065

REACTIONS (2)
  - Acute myeloid leukaemia [Fatal]
  - Acute myeloid leukaemia [Not Recovered/Not Resolved]
